FAERS Safety Report 14147618 (Version 1)
Quarter: 2017Q4

REPORT INFORMATION
  Report Type: Spontaneous
  Country: US (occurrence: US)
  Receive Date: 20171031
  Receipt Date: 20171031
  Transmission Date: 20180321
  Serious: No
  Sender: FDA-Public Use
  Company Number: US-ROMARKLABS-2017-US-000008

PATIENT
  Age: 75 Year
  Sex: Female

DRUGS (5)
  1. METFORMIN [Concomitant]
     Active Substance: METFORMIN HYDROCHLORIDE
     Indication: DIABETES MELLITUS
     Route: 048
  2. SIMVASTATIN. [Concomitant]
     Active Substance: SIMVASTATIN
     Indication: BLOOD CHOLESTEROL INCREASED
     Route: 048
  3. LORAZEPAM. [Concomitant]
     Active Substance: LORAZEPAM
     Indication: ANXIETY
     Dosage: 1/2 DOSE AS NEEDED
     Route: 048
  4. ALINIA [Suspect]
     Active Substance: NITAZOXANIDE
     Indication: BACTERIAL INFECTION
     Dosage: 1 TABLET ONE TIME
     Route: 048
     Dates: start: 20170201, end: 20170201
  5. PREVACID [Concomitant]
     Active Substance: LANSOPRAZOLE
     Indication: ABDOMINAL PAIN UPPER
     Route: 048
     Dates: end: 2017

REACTIONS (4)
  - Diarrhoea [Recovered/Resolved]
  - Insomnia [Recovered/Resolved]
  - Chromaturia [Recovered/Resolved]
  - Chest pain [Recovered/Resolved]

NARRATIVE: CASE EVENT DATE: 20170201
